FAERS Safety Report 4665883-9 (Version None)
Quarter: 2005Q2

REPORT INFORMATION
  Report Type: 
  Country: None (occurrence: None)
  Receive Date: 20050517
  Receipt Date: 20050428
  Transmission Date: 20051028
  Serious: Yes (Other)
  Sender: FDA-Public Use
  Company Number: USA050496833

PATIENT
  Age: 76 Year
  Sex: Female

DRUGS (9)
  1. EVISTA [Suspect]
     Indication: BONE DISORDER
     Dosage: 60 MG DAY
     Dates: start: 19990101
  2. PLAVIX [Concomitant]
  3. DIOVAN [Concomitant]
  4. PHOSLO [Concomitant]
  5. FOLGARD [Concomitant]
  6. SYNTHROID [Concomitant]
  7. NIACIN [Concomitant]
  8. NEPHROCAPS [Concomitant]
  9. FOSAMAX [Concomitant]

REACTIONS (3)
  - DIALYSIS [None]
  - RENAL DISORDER [None]
  - RENAL IMPAIRMENT [None]
